FAERS Safety Report 7500591-8 (Version None)
Quarter: 2011Q2

REPORT INFORMATION
  Report Type: 
  Country: None (occurrence: None)
  Receive Date: 20110524
  Receipt Date: 20110512
  Transmission Date: 20111010
  Serious: Yes (Other)
  Sender: FDA-Public Use
  Company Number: CA-JNJFOC-20110505418

PATIENT
  Sex: Male
  Weight: 87.2 kg

DRUGS (6)
  1. REMICADE [Suspect]
     Route: 042
     Dates: start: 20110216
  2. IMURAN [Concomitant]
     Route: 048
  3. REMICADE [Suspect]
     Route: 042
     Dates: start: 20110510
  4. MESALAMINE [Concomitant]
  5. REMICADE [Suspect]
     Indication: CROHN'S DISEASE
     Route: 042
     Dates: start: 20101109
  6. BENADRYL [Concomitant]
     Indication: PREMEDICATION

REACTIONS (11)
  - OCULAR HYPERAEMIA [None]
  - MALAISE [None]
  - CHANGE OF BOWEL HABIT [None]
  - INFECTION [None]
  - PRURITUS [None]
  - OROPHARYNGEAL PAIN [None]
  - PYREXIA [None]
  - HEADACHE [None]
  - EYE SWELLING [None]
  - INCISION SITE PAIN [None]
  - HYDROCELE OPERATION [None]
